FAERS Safety Report 10422085 (Version 1)
Quarter: 2014Q3

REPORT INFORMATION
  Report Type: Spontaneous
  Country: US (occurrence: US)
  Receive Date: 20140901
  Receipt Date: 20140901
  Transmission Date: 20150326
  Serious: No
  Sender: FDA-Public Use
  Company Number: US-SA-2014SA002033

PATIENT
  Age: 83 Year
  Sex: Female

DRUGS (2)
  1. AVAPRO [Suspect]
     Active Substance: IRBESARTAN
     Indication: HYPERTENSION
     Route: 048
  2. AVAPRO [Suspect]
     Active Substance: IRBESARTAN
     Indication: HYPERTENSION
     Dosage: FREQUENCY: HALF TABLET OF 300 MG BEDTIME
     Route: 048

REACTIONS (2)
  - Alopecia [Not Recovered/Not Resolved]
  - Wrong technique in drug usage process [Unknown]
